FAERS Safety Report 5121786-7 (Version None)
Quarter: 2006Q4

REPORT INFORMATION
  Report Type: 
  Country: None (occurrence: None)
  Receive Date: 20061006
  Receipt Date: 20060927
  Transmission Date: 20070319
  Serious: Yes (Hospitalization)
  Sender: FDA-Public Use
  Company Number: IT-ROCHE-464913

PATIENT
  Age: 19 Year
  Sex: Female

DRUGS (1)
  1. ISOTRETINOIN [Suspect]
     Route: 048

REACTIONS (8)
  - ABASIA [None]
  - BEDRIDDEN [None]
  - ELECTROMYOGRAM ABNORMAL [None]
  - FATIGUE [None]
  - MUSCULAR WEAKNESS [None]
  - MYALGIA [None]
  - MYOPATHY [None]
  - SKIN DISORDER [None]
